FAERS Safety Report 7906355-5 (Version None)
Quarter: 2011Q4

REPORT INFORMATION
  Report Type: 
  Country: None (occurrence: None)
  Receive Date: 20111110
  Receipt Date: 20111031
  Transmission Date: 20120403
  Serious: No
  Sender: FDA-Public Use
  Company Number: US-PFIZER INC-2011271900

PATIENT
  Sex: Female
  Weight: 116.55 kg

DRUGS (1)
  1. VANCOMYCIN HCL [Suspect]

REACTIONS (1)
  - DRUG HYPERSENSITIVITY [None]
